FAERS Safety Report 5274390-4 (Version None)
Quarter: 2007Q1

REPORT INFORMATION
  Report Type: 
  Country: None (occurrence: None)
  Receive Date: 20070323
  Receipt Date: 20070313
  Transmission Date: 20070707
  Serious: Yes (Hospitalization)
  Sender: FDA-Public Use
  Company Number: DE-PFIZER INC-2007007400

PATIENT
  Sex: Male
  Weight: 109 kg

DRUGS (4)
  1. LYRICA [Suspect]
     Indication: DIABETIC NEUROPATHY
     Dosage: DAILY DOSE:50MG
     Route: 048
     Dates: start: 20070126, end: 20070131
  2. LYRICA [Suspect]
     Indication: PARKINSON'S DISEASE
  3. ALL OTHER THERAPEUTIC PRODUCTS [Concomitant]
  4. INSULIN [Concomitant]

REACTIONS (6)
  - COUGH [None]
  - DRUG HYPERSENSITIVITY [None]
  - HEADACHE [None]
  - MUSCLE TWITCHING [None]
  - NASOPHARYNGITIS [None]
  - NAUSEA [None]
